FAERS Safety Report 6386478-5 (Version None)
Quarter: 2009Q4

REPORT INFORMATION
  Report Type: 
  Country: None (occurrence: None)
  Receive Date: 20091002
  Receipt Date: 20090617
  Transmission Date: 20100525
  Serious: Yes (Other)
  Sender: FDA-Public Use
  Company Number: US-ASTRAZENECA-2009UW15526

PATIENT
  Sex: Female

DRUGS (4)
  1. ARIMIDEX [Suspect]
     Route: 048
  2. CALCIUM [Concomitant]
  3. VITAMIN D [Concomitant]
  4. BONIVA [Concomitant]

REACTIONS (2)
  - FALL [None]
  - FRACTURE [None]
